FAERS Safety Report 12496739 (Version 5)
Quarter: 2016Q4

REPORT INFORMATION
  Report Type: Spontaneous
  Country: IT (occurrence: IT)
  Receive Date: 20160624
  Receipt Date: 20161025
  Transmission Date: 20170207
  Serious: Yes (Hospitalization, Other)
  Sender: FDA-Public Use
  Company Number: IT-ABBVIE-16P-083-1659970-00

PATIENT
  Age: 59 Year
  Sex: Male

DRUGS (4)
  1. VALPROIC ACID. [Suspect]
     Active Substance: VALPROIC ACID
     Indication: PSYCHOTIC DISORDER
     Route: 065
  2. LEVETIRACETAM. [Suspect]
     Active Substance: LEVETIRACETAM
     Indication: PSYCHOTIC DISORDER
     Route: 048
  3. LEVETIRACETAM. [Suspect]
     Active Substance: LEVETIRACETAM
     Indication: EPILEPSY
  4. PAROXETINE HYDROCHLORIDE. [Suspect]
     Active Substance: PAROXETINE HYDROCHLORIDE
     Indication: AFFECTIVE DISORDER
     Route: 065

REACTIONS (21)
  - Fall [Recovering/Resolving]
  - Memory impairment [Recovering/Resolving]
  - Drug intolerance [Recovering/Resolving]
  - Somatic symptom disorder [Recovering/Resolving]
  - Dyscalculia [Recovering/Resolving]
  - Pleurothotonus [Recovering/Resolving]
  - Extrapyramidal disorder [Recovering/Resolving]
  - Dysphonia [Recovering/Resolving]
  - Muscle rigidity [Recovering/Resolving]
  - Depressed mood [Recovering/Resolving]
  - Gait disturbance [Recovering/Resolving]
  - Cerebral ventricle dilatation [Recovering/Resolving]
  - Parkinsonism [Recovering/Resolving]
  - Hyperreflexia [Recovering/Resolving]
  - Bradykinesia [Recovering/Resolving]
  - Cognitive disorder [Recovering/Resolving]
  - Posture abnormal [Recovering/Resolving]
  - Sleep disorder [Recovering/Resolving]
  - Weight decreased [Recovering/Resolving]
  - Condition aggravated [Recovering/Resolving]
  - Dysphoria [Recovered/Resolved]
